FAERS Safety Report 6432588-3 (Version None)
Quarter: 2009Q4

REPORT INFORMATION
  Report Type: 
  Country: None (occurrence: None)
  Receive Date: 20091109
  Receipt Date: 20091030
  Transmission Date: 20100525
  Serious: Yes (Life-Threatening)
  Sender: FDA-Public Use
  Company Number: JP-ABBOTT-09P-087-0597732-00

PATIENT
  Sex: Male
  Weight: 22.4 kg

DRUGS (2)
  1. KLARICID DRY SYRUP [Suspect]
     Indication: OTITIS MEDIA
     Route: 048
  2. CEFMENOXIME HYDROCHLORIDE [Suspect]
     Indication: DRUG USE FOR UNKNOWN INDICATION
     Route: 045

REACTIONS (1)
  - GENERALISED ERYTHEMA [None]
